FAERS Safety Report 5699367-6 (Version None)
Quarter: 2008Q2

REPORT INFORMATION
  Report Type: 
  Country: None (occurrence: None)
  Receive Date: 20080404
  Receipt Date: 20080320
  Transmission Date: 20081010
  Serious: Yes (Other)
  Sender: FDA-Public Use
  Company Number: ENTC2008-0094

PATIENT
  Age: 60 Year
  Sex: Female

DRUGS (2)
  1. STALEVO 100 [Suspect]
     Indication: PARKINSON'S DISEASE
     Dosage: HIGH DOSAGE, ORAL
     Route: 048
     Dates: start: 20070101, end: 20080101
  2. MODOPAR [Concomitant]

REACTIONS (1)
  - PATHOLOGICAL GAMBLING [None]
